FAERS Safety Report 4344919-9 (Version None)
Quarter: 2004Q2

REPORT INFORMATION
  Report Type: 
  Country: None (occurrence: None)
  Receive Date: 20040420
  Receipt Date: 20040406
  Transmission Date: 20050107
  Serious: Yes (Hospitalization)
  Sender: FDA-Public Use
  Company Number: US-JNJFOC-20040401247

PATIENT
  Age: 68 Year
  Sex: Female

DRUGS (8)
  1. INFLIXIMAB (INFLIXIMAB, RECOMBINANT) LYOPHILIZED POWDER [Suspect]
     Indication: RHEUMATOID ARTHRITIS
     Dosage: 5 MG/KG, 1 IN 8 WEEK, INTRAVENOUS
     Route: 042
     Dates: start: 20000524
  2. NEXIUM [Concomitant]
  3. PROPRANOLOL [Concomitant]
  4. PREDNISONE [Concomitant]
  5. HYZAAR [Concomitant]
  6. HYDROCODONE (HYDROCODONE) [Concomitant]
  7. FOLIC ACID [Concomitant]
  8. POTASSIUM (POTASSIUM) [Concomitant]

REACTIONS (4)
  - HAEMATEMESIS [None]
  - PERITONITIS BACTERIAL [None]
  - RECTAL HAEMORRHAGE [None]
  - VARICES OESOPHAGEAL [None]
